FAERS Safety Report 10647581 (Version 3)
Quarter: 2015Q1

REPORT INFORMATION
  Report Type: Report from Study
  Country: IL (occurrence: IL)
  Receive Date: 20141211
  Receipt Date: 20150112
  Transmission Date: 20150720
  Serious: Yes (Other)
  Sender: FDA-Public Use
  Company Number: PHHY2013IL020769

PATIENT
  Age: 71 Year
  Sex: Male

DRUGS (1)
  1. GILENYA [Suspect]
     Active Substance: FINGOLIMOD HYDROCHLORIDE
     Indication: MULTIPLE SCLEROSIS
     Dosage: 0.5 MG, QD
     Route: 048
     Dates: start: 20120418

REACTIONS (4)
  - Squamous cell carcinoma [Unknown]
  - Rhinorrhoea [Not Recovered/Not Resolved]
  - Swelling face [Unknown]
  - Facial pain [Unknown]

NARRATIVE: CASE EVENT DATE: 20141118
